FAERS Safety Report 26116734 (Version 1)
Quarter: 2025Q4

REPORT INFORMATION
  Report Type: Report from Study
  Country: US (occurrence: US)
  Receive Date: 20251203
  Receipt Date: 20251203
  Transmission Date: 20260117
  Serious: Yes (Hospitalization)
  Sender: MYLAN
  Company Number: US-MYLANLABS-2025M1103052

PATIENT

DRUGS (8)
  1. VERAPAMIL [Suspect]
     Active Substance: VERAPAMIL HYDROCHLORIDE
     Indication: Type 1 diabetes mellitus
     Dosage: UNK
  2. VERAPAMIL [Suspect]
     Active Substance: VERAPAMIL HYDROCHLORIDE
     Dosage: UNK
  3. VERAPAMIL [Suspect]
     Active Substance: VERAPAMIL HYDROCHLORIDE
     Dosage: UNK
     Route: 065
  4. VERAPAMIL [Suspect]
     Active Substance: VERAPAMIL HYDROCHLORIDE
     Dosage: UNK
     Route: 065
  5. VERAPAMIL [Suspect]
     Active Substance: VERAPAMIL HYDROCHLORIDE
     Dosage: TOOK EXTRA TO COMPENSATE (AT LEAST 720MG)
  6. VERAPAMIL [Suspect]
     Active Substance: VERAPAMIL HYDROCHLORIDE
     Dosage: TOOK EXTRA TO COMPENSATE (AT LEAST 720MG)
  7. VERAPAMIL [Suspect]
     Active Substance: VERAPAMIL HYDROCHLORIDE
     Dosage: TOOK EXTRA TO COMPENSATE (AT LEAST 720MG)
     Route: 065
  8. VERAPAMIL [Suspect]
     Active Substance: VERAPAMIL HYDROCHLORIDE
     Dosage: TOOK EXTRA TO COMPENSATE (AT LEAST 720MG)
     Route: 065

REACTIONS (4)
  - Atrioventricular block [Unknown]
  - Intentional product misuse [Unknown]
  - Off label use [Unknown]
  - Treatment noncompliance [Unknown]
